FAERS Safety Report 6790260-4 (Version None)
Quarter: 2010Q2

REPORT INFORMATION
  Report Type: 
  Country: None (occurrence: None)
  Receive Date: 20100624
  Receipt Date: 20091201
  Transmission Date: 20101027
  Serious: Yes (Hospitalization)
  Sender: FDA-Public Use
  Company Number: NL-ELI_LILLY_AND_COMPANY-NL200912001697

PATIENT
  Sex: Female
  Weight: 50 kg

DRUGS (14)
  1. DROTRECOGIN ALFA (ACTIVATED) [Suspect]
     Indication: SEPTIC SHOCK
     Dosage: UNK, UNK
     Route: 042
     Dates: start: 20091128, end: 20091201
  2. NOREPINEPHRINE [Concomitant]
     Indication: HYPOTENSION
     Dosage: 2 UG, EVERY MIN
     Dates: start: 20091128
  3. PROPOFOL [Concomitant]
     Indication: SEDATION
     Dosage: 160 MG, EVERY HOUR
     Dates: start: 20091128
  4. ACTRAPID                           /00030501/ [Concomitant]
     Indication: HYPERGLYCAEMIA
     Dosage: 3.5 IU, EVERY HOUR
     Dates: start: 20091128
  5. MORPHINE [Concomitant]
     Indication: PAIN
     Dosage: 2 MG, EVERY HOUR
     Dates: start: 20091128
  6. BERODUAL [Concomitant]
     Indication: BRONCHOSPASM
     Dosage: 200 UG, DAILY (1/D)
     Dates: start: 20091129
  7. CIPROFLOXACIN [Concomitant]
     Indication: SEPSIS
     Dosage: 5700 MG, DAILY (1/D)
     Dates: start: 20091128
  8. ENOXAPARIN [Concomitant]
     Indication: THROMBOSIS PROPHYLAXIS
     Dates: start: 20091128
  9. KEFZOL [Concomitant]
     Indication: SEPSIS
     Dates: start: 20091128
  10. TAMIFLU [Concomitant]
     Indication: INFLUENZA
     Dosage: 150 MG, DAILY (1/D)
     Dates: start: 20091128
  11. PANTOPRAZOLE [Concomitant]
     Indication: PROPHYLAXIS
     Dosage: 40 MG, DAILY (1/D)
     Dates: start: 20091128
  12. PARACETAMOL [Concomitant]
     Indication: PAIN
     Dosage: 4000 MG, DAILY (1/D)
     Dates: start: 20091128
  13. SOLU-CORTEF [Concomitant]
     Indication: SEPSIS
     Dosage: 300 MG, DAILY
     Dates: start: 20091128
  14. DURATEARS [Concomitant]
     Indication: DRY EYE
     Dates: start: 20091128

REACTIONS (1)
  - ACUTE MYOCARDIAL INFARCTION [None]
